FAERS Safety Report 4815574-6 (Version None)
Quarter: 2005Q4

REPORT INFORMATION
  Report Type: 
  Country: None (occurrence: None)
  Receive Date: 20051027
  Receipt Date: 20051018
  Transmission Date: 20060501
  Serious: Yes (Hospitalization)
  Sender: FDA-Public Use
  Company Number: NLWYE065518OCT05

PATIENT
  Age: 45 Year
  Sex: Female

DRUGS (1)
  1. LEVONORGESTREL + ETHINYL ESTRADIOL [Suspect]
     Indication: CONTRACEPTION
     Dosage: 1 TABLET 1X PER 1 DAY ORAL
     Route: 048
     Dates: start: 19900101

REACTIONS (1)
  - HEPATIC HAEMORRHAGE [None]
